FAERS Safety Report 4436395-2 (Version None)
Quarter: 2004Q3

REPORT INFORMATION
  Report Type: 
  Country: None (occurrence: None)
  Receive Date: 20040830
  Receipt Date: 20040503
  Transmission Date: 20050211
  Serious: No
  Sender: FDA-Public Use
  Company Number: US-BRISTOL-MYERS SQUIBB COMPANY-12578175

PATIENT
  Age: 18 Year

DRUGS (3)
  1. ABILIFY [Suspect]
  2. DILANTIN [Concomitant]
  3. LAMOTRIGINE [Concomitant]

REACTIONS (3)
  - EPISTAXIS [None]
  - HYPERTENSION [None]
  - PRESCRIBED OVERDOSE [None]
